FAERS Safety Report 8083596-0 (Version None)
Quarter: 2012Q1

REPORT INFORMATION
  Report Type: 
  Country: None (occurrence: None)
  Receive Date: 20120127
  Receipt Date: 20110127
  Transmission Date: 20120608
  Serious: No
  Sender: FDA-Public Use
  Company Number: US-ABBOTT-11P-163-0700990-00

PATIENT
  Age: 67 Year
  Sex: Female

DRUGS (12)
  1. SINGULAIR [Concomitant]
     Indication: PRODUCT USED FOR UNKNOWN INDICATION
     Route: 048
  2. PROTONIX [Concomitant]
     Indication: GASTROOESOPHAGEAL REFLUX DISEASE
     Route: 048
  3. NORVASC [Concomitant]
     Indication: PRODUCT USED FOR UNKNOWN INDICATION
     Route: 048
  4. AMBIEN [Concomitant]
     Indication: INSOMNIA
     Route: 048
  5. XANAX [Concomitant]
     Indication: PRODUCT USED FOR UNKNOWN INDICATION
     Route: 048
  6. PREMARIN [Concomitant]
     Indication: PRODUCT USED FOR UNKNOWN INDICATION
     Route: 048
  7. HUMIRA [Suspect]
     Indication: LICHEN PLANUS
     Dates: start: 20091001
  8. ZOCOR [Concomitant]
     Indication: BLOOD CHOLESTEROL
     Route: 048
  9. ZANTAC [Concomitant]
     Indication: PRODUCT USED FOR UNKNOWN INDICATION
     Dosage: EACH NIGHT
     Route: 048
  10. ADVAIR HFA [Concomitant]
     Indication: DYSPNOEA
     Dosage: 2 PUFFS DAILY AS NEEDED
     Route: 055
  11. ALBUTEROL [Concomitant]
     Indication: DYSPNOEA
     Dosage: 2 PUFFS FOUR TIMES A DAY AS NEEDED
     Route: 055
  12. SYNTHROID [Concomitant]
     Indication: HYPOTHYROIDISM
     Route: 048

REACTIONS (1)
  - INJECTION SITE REACTION [None]
